FAERS Safety Report 5603275-6 (Version None)
Quarter: 2008Q1

REPORT INFORMATION
  Report Type: 
  Country: None (occurrence: None)
  Receive Date: 20080125
  Receipt Date: 20080114
  Transmission Date: 20080703
  Serious: Yes (Hospitalization)
  Sender: FDA-Public Use
  Company Number: DE-PFIZER INC-2008005392

PATIENT
  Age: 62 Year
  Sex: Female

DRUGS (2)
  1. AROMASIN [Suspect]
     Indication: BREAST CANCER
     Route: 048
  2. TAMOXIFEN [Suspect]
     Indication: BREAST CANCER
     Route: 048

REACTIONS (1)
  - PULMONARY EMBOLISM [None]
